FAERS Safety Report 23060658 (Version 2)
Quarter: 2023Q4

REPORT INFORMATION
  Report Type: Spontaneous
  Country: FR (occurrence: FR)
  Receive Date: 20231012
  Receipt Date: 20231201
  Transmission Date: 20240110
  Serious: Yes (Hospitalization, Other)
  Sender: FDA-Public Use
  Company Number: None

PATIENT
  Age: 32 Year
  Sex: Female
  Weight: 54 kg

DRUGS (10)
  1. TRAZIMERA [Suspect]
     Active Substance: TRASTUZUMAB-QYYP
     Indication: Breast cancer
     Dosage: 360 MG, EVERY 3 WEEKS, 480 MG DAY 1 THEN 360 MG EVERY 21 DAYS
     Route: 042
     Dates: start: 20230510, end: 20230828
  2. PERJETA [Suspect]
     Active Substance: PERTUZUMAB
     Indication: Breast cancer
     Dosage: 420 MG, EVERY 3 WEEKS, 840 MG DAY 1 THEN 420 MG EVERY 21 DAYS
     Route: 042
     Dates: start: 20230510, end: 20230828
  3. PERJETA [Suspect]
     Active Substance: PERTUZUMAB
     Dosage: LAST DOSE ADMINISTERED ON: 28/AUG/2023 22/AUG/2023
     Dates: start: 202308
  4. ZYPREXA [Concomitant]
     Active Substance: OLANZAPINE
     Indication: Mental disorder
     Dosage: UNK
  5. PAROXETINE HYDROCHLORIDE [Concomitant]
     Active Substance: PAROXETINE HYDROCHLORIDE\PAROXETINE HYDROCHLORIDE ANHYDROUS
     Indication: Mental disorder
     Dosage: UNK
  6. OXAZEPAM [Concomitant]
     Active Substance: OXAZEPAM
     Indication: Mental disorder
     Dosage: UNK
  7. TRIMEPRAZINE [Concomitant]
     Active Substance: TRIMEPRAZINE
     Indication: Mental disorder
     Dosage: UNK
  8. TAXOL [Concomitant]
     Active Substance: PACLITAXEL
     Dosage: UNK UNK, WEEKLY
  9. TRASTUZUMAB [Concomitant]
     Active Substance: TRASTUZUMAB
     Dosage: 480 MG
  10. TRASTUZUMAB [Concomitant]
     Active Substance: TRASTUZUMAB
     Dosage: 360 MG, EVERY 3 WEEKS

REACTIONS (5)
  - Optic neuropathy [Not Recovered/Not Resolved]
  - Neoplasm progression [Unknown]
  - Rash pustular [Unknown]
  - Headache [Unknown]
  - Migraine [Unknown]

NARRATIVE: CASE EVENT DATE: 20230619
